FAERS Safety Report 14071063 (Version 1)
Quarter: 2017Q4

REPORT INFORMATION
  Report Type: Spontaneous
  Country: GB (occurrence: GB)
  Receive Date: 20171011
  Receipt Date: 20171011
  Transmission Date: 20180321
  Serious: Yes (Hospitalization)
  Sender: FDA-Public Use
  Company Number: GB-ACCORD-057461

PATIENT
  Age: 71 Year
  Sex: Female

DRUGS (9)
  1. CLOPIDOGREL [Concomitant]
     Active Substance: CLOPIDOGREL BISULFATE
     Dosage: HELD DUE TO LOW PLATELETS/PANCYTOPENIA
  2. FOLIC ACID. [Concomitant]
     Active Substance: FOLIC ACID
     Dosage: EACH DAY EXCEPT TUESDAYS
  3. PARACETAMOL [Concomitant]
     Active Substance: ACETAMINOPHEN
     Dosage: FOUR TIMES A DAY
  4. EVACAL D3 CHEWABLE [Concomitant]
     Dosage: 1500MG/400 UNIT
  5. OMEPRAZOLE. [Concomitant]
     Active Substance: OMEPRAZOLE
  6. SIMVASTATIN. [Concomitant]
     Active Substance: SIMVASTATIN
     Dosage: AT NIGHT
  7. COCODAMOL [Concomitant]
     Active Substance: ACETAMINOPHEN\CODEINE PHOSPHATE
     Dosage: 15MG/500 MG, AT NIGHT
  8. METHOTREXATE. [Suspect]
     Active Substance: METHOTREXATE
     Indication: PRODUCT USED FOR UNKNOWN INDICATION
  9. CARMELLOSE/CARMELLOSE CALCIUM/CARMELLOSE SODIUM [Concomitant]
     Dosage: 0.4ML BOTH EYES

REACTIONS (3)
  - Pancytopenia [Recovered/Resolved]
  - Clostridium difficile infection [Unknown]
  - Blast cells present [Unknown]
